FAERS Safety Report 18628525 (Version 2)
Quarter: 2020Q4

REPORT INFORMATION
  Report Type: Report from Study
  Country: FR (occurrence: FR)
  Receive Date: 20201217
  Receipt Date: 20201230
  Transmission Date: 20210114
  Serious: Yes (Death, Hospitalization, Other)
  Sender: FDA-Public Use
  Company Number: NVSC2020FR269875

PATIENT
  Sex: Male
  Weight: 62 kg

DRUGS (11)
  1. ZOCOR [Concomitant]
     Active Substance: SIMVASTATIN
     Indication: HYPERCHOLESTEROLAEMIA
     Dosage: 20 MG
     Route: 048
     Dates: start: 202007, end: 20200930
  2. TARDYFERON [Concomitant]
     Active Substance: FERROUS SULFATE
     Dosage: 80 MG
     Route: 048
     Dates: start: 202001, end: 20200930
  3. TRAMETINIB [Suspect]
     Active Substance: TRAMETINIB
     Dosage: 1 MG
     Route: 048
     Dates: start: 20201016
  4. PLAVIX [Concomitant]
     Active Substance: CLOPIDOGREL BISULFATE
     Indication: CARDIOVASCULAR DISORDER
     Dosage: 75 MG
     Route: 048
     Dates: start: 202005, end: 20200930
  5. KARDEGIC [Concomitant]
     Active Substance: ASPIRIN DL-LYSINE
     Indication: CARDIOVASCULAR DISORDER
     Dosage: 75 MG
     Route: 048
     Dates: start: 2003, end: 20200930
  6. CO RENITEC [Concomitant]
     Active Substance: ENALAPRIL MALEATE\HYDROCHLOROTHIAZIDE
     Indication: BLOOD PRESSURE INCREASED
     Dosage: 90 UNK
     Route: 048
     Dates: start: 2014, end: 20200930
  7. MONO-TILDIEM [Concomitant]
     Active Substance: DILTIAZEM HYDROCHLORIDE
     Indication: BLOOD PRESSURE INCREASED
     Dosage: 300 MG
     Route: 048
     Dates: start: 2019, end: 20200930
  8. DABRAFENIB [Suspect]
     Active Substance: DABRAFENIB
     Dosage: 150 MG
     Route: 048
     Dates: start: 20201016
  9. TRAMETINIB [Suspect]
     Active Substance: TRAMETINIB
     Indication: METASTATIC MALIGNANT MELANOMA
     Dosage: 2 MG
     Route: 048
     Dates: start: 20200925, end: 20200928
  10. DABRAFENIB [Suspect]
     Active Substance: DABRAFENIB
     Indication: METASTATIC MALIGNANT MELANOMA
     Dosage: 300 MG
     Route: 048
     Dates: start: 20200925, end: 20200928
  11. TARDYFERON [Concomitant]
     Active Substance: FERROUS SULFATE
     Indication: IRON DEFICIENCY
     Dosage: UNK
     Route: 048
     Dates: start: 2020, end: 20200929

REACTIONS (15)
  - Hypothermia [Recovered/Resolved]
  - Acute kidney injury [Unknown]
  - Anaemia [Unknown]
  - Tumour lysis syndrome [Recovering/Resolving]
  - Faeces discoloured [Recovered/Resolved]
  - Blood lactate dehydrogenase increased [Unknown]
  - Hypotension [Recovered/Resolved]
  - Hypermagnesaemia [Unknown]
  - Melaena [Unknown]
  - Malignant neoplasm progression [Fatal]
  - Hyperthermia [Recovered/Resolved]
  - Diarrhoea [Recovered/Resolved]
  - Metastatic malignant melanoma [Fatal]
  - Hyperuricaemia [Unknown]
  - Hyperphosphataemia [Unknown]

NARRATIVE: CASE EVENT DATE: 20200926
